APPROVED DRUG PRODUCT: LEVORPHANOL TARTRATE
Active Ingredient: LEVORPHANOL TARTRATE
Strength: 2MG
Dosage Form/Route: TABLET;ORAL
Application: A213479 | Product #001 | TE Code: BX
Applicant: NOVITIUM PHARMA LLC
Approved: Jul 1, 2020 | RLD: No | RS: No | Type: RX